FAERS Safety Report 5590937-2 (Version None)
Quarter: 2008Q1

REPORT INFORMATION
  Report Type: 
  Country: None (occurrence: None)
  Receive Date: 20080115
  Receipt Date: 20080111
  Transmission Date: 20080703
  Serious: Yes (Hospitalization)
  Sender: FDA-Public Use
  Company Number: FR-WYE-G00871408

PATIENT
  Sex: Female

DRUGS (10)
  1. EFFEXOR [Suspect]
     Indication: DEPRESSION
     Route: 048
     Dates: start: 20060101, end: 20071126
  2. PLAVIX [Concomitant]
  3. CRESTOR [Concomitant]
     Dosage: 10 MG TOTAL DAILY
  4. PARACETAMOL [Concomitant]
     Dosage: UNKNOWN
  5. STILNOX [Concomitant]
     Dosage: UNKNOWN
  6. GLUCOR [Concomitant]
     Dosage: UNKNOWN
  7. NOVONORM [Concomitant]
     Dosage: UNKNOWN
  8. LANTUS [Concomitant]
     Dosage: UNKNOWN
  9. ICAZ [Concomitant]
  10. OLMESARTAN MEDOXOMIL [Concomitant]

REACTIONS (2)
  - CARDIO-RESPIRATORY ARREST [None]
  - TORSADE DE POINTES [None]
